FAERS Safety Report 17897421 (Version 1)
Quarter: 2020Q2

REPORT INFORMATION
  Report Type: Report from Study
  Country: IT (occurrence: IT)
  Receive Date: 20200616
  Receipt Date: 20200616
  Transmission Date: 20200714
  Serious: Yes (Hospitalization)
  Sender: FDA-Public Use
  Company Number: IT-TEVA-2020-IT-1247915

PATIENT
  Age: 83 Year
  Sex: Female

DRUGS (8)
  1. EUTIROX 75 MICROGRAMMI COMPRESSE [Concomitant]
     Active Substance: LEVOTHYROXINE SODIUM
  2. MOVICOL 13,8 G, POLVERE PER SOLUZIONE ORALE [Concomitant]
     Dosage: 2 DOSAGEFORM
  3. SIMVASTATIN. [Concomitant]
     Active Substance: SIMVASTATIN
     Dosage: 40 MILLIGRAM
  4. LASIX [Concomitant]
     Active Substance: FUROSEMIDE
  5. METFORMIN HYDROCHLORIDE. [Suspect]
     Active Substance: METFORMIN HYDROCHLORIDE
     Indication: TYPE 2 DIABETES MELLITUS
     Dosage: 500 MILLIGRAM
     Route: 048
     Dates: start: 20200101, end: 20200503
  6. TRAJENTA 5?MG FILM-COATED TABLETS [Concomitant]
  7. MEMANTINE HYDROCHLORIDE. [Concomitant]
     Active Substance: MEMANTINE HYDROCHLORIDE
     Dosage: 20 MILLIGRAM
  8. DAPAROX 20 MG COMPRESSE RIVESTITE CON FILM [Concomitant]
     Active Substance: PAROXETINE HYDROCHLORIDE

REACTIONS (3)
  - Hypernatraemia [Unknown]
  - Dehydration [Unknown]
  - Diabetic hyperosmolar coma [Unknown]

NARRATIVE: CASE EVENT DATE: 20200503
